FAERS Safety Report 9049784 (Version 3)
Quarter: 2013Q2

REPORT INFORMATION
  Report Type: Spontaneous
  Country: US (occurrence: US)
  Receive Date: 20130205
  Receipt Date: 20130403
  Transmission Date: 20140414
  Serious: Yes (Other)
  Sender: FDA-Public Use
  Company Number: US-ASTRAZENECA-2012SE71753

PATIENT
  Age: 50 Year
  Sex: Female

DRUGS (9)
  1. NEXIUM [Suspect]
     Indication: GASTROOESOPHAGEAL REFLUX DISEASE
     Route: 048
  2. ELMIRON [Concomitant]
  3. VITAMIN B6 [Concomitant]
  4. VITAMIN B12 [Concomitant]
  5. BAYER FOR WOMEN [Concomitant]
  6. COLON CLEANSER [Concomitant]
  7. CHROMIUM PICOLANATE [Concomitant]
  8. DHEA VITAMIN [Concomitant]
  9. ONE A DAY VITAMIN [Concomitant]

REACTIONS (8)
  - Blood pressure increased [Unknown]
  - Nerve compression [Unknown]
  - Migraine [Not Recovered/Not Resolved]
  - Dyspepsia [Unknown]
  - Constipation [Unknown]
  - Headache [Unknown]
  - Malaise [Unknown]
  - Drug dose omission [Unknown]
